FAERS Safety Report 8398197-4 (Version None)
Quarter: 2012Q2

REPORT INFORMATION
  Report Type: 
  Country: None (occurrence: None)
  Receive Date: 20120531
  Receipt Date: 20120522
  Transmission Date: 20120825
  Serious: Yes (Other)
  Sender: FDA-Public Use
  Company Number: US-NOVOPROD-342641

PATIENT
  Age: 72 Year
  Sex: Female
  Weight: 58.957 kg

DRUGS (3)
  1. VAGIFEM [Suspect]
     Indication: VULVOVAGINAL DRYNESS
     Dosage: UNKNOWN
     Route: 067
     Dates: start: 20060101, end: 20110101
  2. MOBIC [Concomitant]
     Indication: ARTHRITIS
     Dosage: UNKNOWN
  3. VAGIFEM [Suspect]
     Indication: VULVOVAGINAL DRYNESS
     Dosage: UNK, BIW
     Route: 067
     Dates: start: 20110101, end: 20120105

REACTIONS (1)
  - BREAST CANCER RECURRENT [None]
